FAERS Safety Report 24107774 (Version 1)
Quarter: 2024Q3

REPORT INFORMATION
  Report Type: Spontaneous
  Country: JP (occurrence: JP)
  Receive Date: 20240718
  Receipt Date: 20240718
  Transmission Date: 20241016
  Serious: Yes (Hospitalization, Other)
  Sender: JUBILANT
  Company Number: JP-JUBILANT CADISTA PHARMACEUTICALS-2024JP001025

PATIENT
  Age: 63 Year
  Sex: Female
  Weight: 36.7 kg

DRUGS (6)
  1. AMANTADINE [Suspect]
     Active Substance: AMANTADINE
     Indication: Parkinson^s disease
     Dosage: 200 MG, ONCE PER DAY
     Route: 065
  2. AMANTADINE [Suspect]
     Active Substance: AMANTADINE
     Dosage: 100 MG, ONCE PER DAY
     Route: 065
  3. AMPICILLIN SODIUM\SULBACTAM SODIUM [Concomitant]
     Active Substance: AMPICILLIN SODIUM\SULBACTAM SODIUM
     Indication: Parkinson^s disease
     Dosage: UNK,UNK
     Route: 042
  4. BENSERAZIDE\LEVODOPA [Concomitant]
     Active Substance: BENSERAZIDE\LEVODOPA
     Indication: Parkinson^s disease
     Dosage: 500/125, MG ONCE PER DAY
     Route: 065
  5. ROPINIROLE [Concomitant]
     Active Substance: ROPINIROLE
     Indication: Parkinson^s disease
     Dosage: 16 MG, ONCE PER DAY
     Route: 065
  6. OPICAPONE [Concomitant]
     Active Substance: OPICAPONE
     Indication: Parkinson^s disease
     Dosage: 25 MG, ONCE PER DAY
     Route: 065

REACTIONS (3)
  - Depressed level of consciousness [Recovered/Resolved]
  - Dyskinesia [Recovered/Resolved]
  - Toxicity to various agents [Recovered/Resolved]
